FAERS Safety Report 8268336-4 (Version None)
Quarter: 2012Q2

REPORT INFORMATION
  Report Type: 
  Country: None (occurrence: None)
  Receive Date: 20120404
  Receipt Date: 20120326
  Transmission Date: 20120825
  Serious: Yes (Disabling)
  Sender: FDA-Public Use
  Company Number: 2012SP016464

PATIENT
  Age: 53 Year
  Sex: Male

DRUGS (6)
  1. COCARL (ACETAMINOPHEN) [Concomitant]
  2. CELESTAMINE TAB [Suspect]
     Indication: SINUSITIS
     Dosage: 0.5 DF, PO
     Route: 048
     Dates: start: 20120101, end: 20120223
  3. ZESULAN [Concomitant]
  4. BRECRUS [Concomitant]
  5. SWORD [Concomitant]
  6. REBAMIPIDE [Concomitant]

REACTIONS (7)
  - GAMMA-GLUTAMYLTRANSFERASE INCREASED [None]
  - BLOOD ALKALINE PHOSPHATASE INCREASED [None]
  - ABDOMINAL DISTENSION [None]
  - PRURITUS GENERALISED [None]
  - ASPARTATE AMINOTRANSFERASE INCREASED [None]
  - ALANINE AMINOTRANSFERASE INCREASED [None]
  - JAUNDICE [None]
